FAERS Safety Report 4421278-4 (Version None)
Quarter: 2004Q3

REPORT INFORMATION
  Report Type: 
  Country: None (occurrence: None)
  Receive Date: 20040804
  Receipt Date: 20040730
  Transmission Date: 20050211
  Serious: Yes (Hospitalization)
  Sender: FDA-Public Use
  Company Number: A001-319-629

PATIENT
  Age: 79 Year
  Sex: Female
  Weight: 60 kg

DRUGS (12)
  1. E2020 (DONEPEZIL HYDROCHLORIDE) [Suspect]
     Indication: VASCULAR DEMENTIA
     Dosage: 5 MG, 1 IN 1 D, ORAL
     Route: 048
     Dates: start: 20031126, end: 20040430
  2. ACETAMINOPHEN [Concomitant]
  3. CALCITRIOL [Concomitant]
  4. FLUVOXAMINE (FLUVOXAMINE) [Concomitant]
  5. LOSEC (OMEPRAZOLE) [Concomitant]
  6. METOPROLOL (METOPROLOL) [Concomitant]
  7. RAMIPRIL [Concomitant]
  8. DETROLAL [Concomitant]
  9. VITAMIN E [Concomitant]
  10. DOCUSATE SODIUM (DOCUSATE SODIUM) [Concomitant]
  11. ASPIRIN [Concomitant]
  12. FOLIC ACID [Concomitant]

REACTIONS (10)
  - ASTHENIA [None]
  - BLOOD GLUCOSE INCREASED [None]
  - CONVULSION [None]
  - CULTURE URINE POSITIVE [None]
  - ENTEROCOCCAL INFECTION [None]
  - HALLUCINATION [None]
  - MUSCLE RIGIDITY [None]
  - SPUTUM CULTURE POSITIVE [None]
  - STREPTOCOCCAL INFECTION [None]
  - UROSEPSIS [None]
